FAERS Safety Report 24862543 (Version 1)
Quarter: 2025Q1

REPORT INFORMATION
  Report Type: Report from Study
  Country: US (occurrence: US)
  Receive Date: 20250120
  Receipt Date: 20250120
  Transmission Date: 20250409
  Serious: Yes (Hospitalization)
  Sender: GILEAD
  Company Number: US-GILEAD-2025-0700311

PATIENT
  Age: 9 Year
  Sex: Female

DRUGS (11)
  1. AZTREONAM LYSINE [Suspect]
     Active Substance: AZTREONAM LYSINE
     Indication: Cystic fibrosis
     Dosage: INHALE 75MG VIA NEBULIZER 3 TIMES DAILY FOR 28 DAYS ON AND 28 DAYS OFF
     Route: 055
     Dates: start: 20200103
  2. PEPCID [Concomitant]
     Active Substance: FAMOTIDINE
  3. GLYCOPYRROLATE [Concomitant]
     Active Substance: GLYCOPYRROLATE
  4. TRISODIUM CITRATE DIHYDRATE [Concomitant]
     Active Substance: TRISODIUM CITRATE DIHYDRATE
  5. VITAMIN B1 [Concomitant]
     Active Substance: THIAMINE HYDROCHLORIDE
  6. CARNITINE [Concomitant]
     Active Substance: CARNITINE
  7. LUPRON DEPOT [Concomitant]
     Active Substance: LEUPROLIDE ACETATE
  8. BACLOFEN [Concomitant]
     Active Substance: BACLOFEN
  9. TRILEPTAL [Concomitant]
     Active Substance: OXCARBAZEPINE
  10. BUDESONIDE [Concomitant]
     Active Substance: BUDESONIDE
  11. NEXIUM I.V. [Concomitant]
     Active Substance: ESOMEPRAZOLE SODIUM

REACTIONS (1)
  - Nasopharyngitis [Unknown]
